FAERS Safety Report 8426013 (Version 4)
Quarter: 2012Q4

REPORT INFORMATION
  Report Type: 
  Country: US (occurrence: US)
  Receive Date: 20120224
  Receipt Date: 20121211
  Transmission Date: 20130627
  Serious: Yes (Other)
  Sender: FDA-Public Use
  Company Number: US-PFIZER INC-2012048065

PATIENT
  Age: 64 Year
  Sex: Female
  Weight: 60.77 kg

DRUGS (3)
  1. EFFEXOR XR [Suspect]
     Indication: DEPRESSION
     Dosage: 75 mg, UNK
  2. URSODIOL [Concomitant]
     Dosage: 300 mg, 3x/day
  3. LOSARTAN [Concomitant]
     Dosage: 25 mg, 1x/day

REACTIONS (4)
  - Suicidal ideation [Unknown]
  - Panic attack [Unknown]
  - Influenza [Unknown]
  - Mental impairment [Unknown]
